FAERS Safety Report 12478396 (Version 1)
Quarter: 2016Q2

REPORT INFORMATION
  Report Type: Spontaneous
  Country: US (occurrence: US)
  Receive Date: 20160618
  Receipt Date: 20160618
  Transmission Date: 20160815
  Serious: No
  Sender: FDA-Public Use
  Company Number: US-ASTRAZENECA-2016SE52266

PATIENT
  Age: 54 Year
  Sex: Male
  Weight: 68 kg

DRUGS (7)
  1. POTASSIUM CHLORIDE. [Concomitant]
     Active Substance: POTASSIUM CHLORIDE
     Indication: BLOOD POTASSIUM DECREASED
     Dates: start: 2012
  2. COQ 10 [Concomitant]
     Active Substance: UBIDECARENONE
     Indication: BLOOD CHOLESTEROL
  3. UNKNOWN FOR CHOLESTEROL [Concomitant]
     Indication: BLOOD CHOLESTEROL
  4. BRILINTA [Suspect]
     Active Substance: TICAGRELOR
     Indication: STENT PLACEMENT
     Route: 048
     Dates: start: 20160407
  5. ASPIRIN. [Concomitant]
     Active Substance: ASPIRIN
     Indication: CARDIAC DISORDER
     Dates: start: 2008
  6. UNKNOWN FOR STOMACH ISSUES [Concomitant]
     Indication: ABDOMINAL DISCOMFORT
  7. ATENOLOL. [Suspect]
     Active Substance: ATENOLOL
     Indication: ARRHYTHMIA
     Route: 065
     Dates: start: 2008

REACTIONS (3)
  - Abdominal distension [Unknown]
  - Decreased appetite [Unknown]
  - Barrett^s oesophagus [Unknown]

NARRATIVE: CASE EVENT DATE: 2008
